FAERS Safety Report 15469291 (Version 2)
Quarter: 2018Q4

REPORT INFORMATION
  Report Type: Spontaneous
  Country: US (occurrence: US)
  Receive Date: 20181005
  Receipt Date: 20181015
  Transmission Date: 20190205
  Serious: Yes (Other)
  Sender: FDA-Public Use
  Company Number: US-RECORDATI RARE DISEASES INC.-US-R13005-18-00246

PATIENT
  Sex: Male

DRUGS (1)
  1. SUCCIMER [Suspect]
     Active Substance: SUCCIMER
     Indication: METAL POISONING
     Route: 065

REACTIONS (3)
  - Off label use [Unknown]
  - Chronic kidney disease [Unknown]
  - Oedema [Unknown]
